FAERS Safety Report 18019899 (Version 1)
Quarter: 2020Q3

REPORT INFORMATION
  Report Type: Spontaneous
  Country: US (occurrence: US)
  Receive Date: 20200714
  Receipt Date: 20200714
  Transmission Date: 20201103
  Serious: No
  Sender: FDA-Public Use
  Company Number: US-PFIZER INC-2020268216

PATIENT
  Age: 57 Year
  Sex: Female
  Weight: 79.37 kg

DRUGS (1)
  1. XELJANZ XR [Suspect]
     Active Substance: TOFACITINIB CITRATE
     Indication: RHEUMATOID ARTHRITIS
     Dosage: 11 MG, DAILY
     Route: 048
     Dates: start: 20200113

REACTIONS (3)
  - Condition aggravated [Unknown]
  - Memory impairment [Unknown]
  - Product dose omission issue [Recovered/Resolved]
